FAERS Safety Report 9918797 (Version 1)
Quarter: 2014Q1

REPORT INFORMATION
  Report Type: Spontaneous
  Country: BR (occurrence: BR)
  Receive Date: 20140224
  Receipt Date: 20140224
  Transmission Date: 20141002
  Serious: Yes (Hospitalization)
  Sender: FDA-Public Use
  Company Number: BR-SA-2014SA020040

PATIENT
  Age: 58 Year
  Sex: Male
  Weight: 90 kg

DRUGS (7)
  1. LANTUS [Suspect]
     Indication: DIABETES MELLITUS
     Route: 058
     Dates: start: 2010
  2. AAS INFANTIL [Concomitant]
     Indication: CARDIOVASCULAR DISORDER
     Dosage: START DATE: 2 YEARS AGO
     Route: 048
     Dates: start: 2012
  3. GLIMEPIRIDE [Concomitant]
     Indication: DIABETES MELLITUS
     Route: 048
  4. METFORMIN [Concomitant]
     Indication: DIABETES MELLITUS
     Route: 048
  5. AMLODIPINE [Concomitant]
     Indication: HYPERTENSION
     Dosage: START DATE: 2 YEARS AGO?STRENGTH: 5 MG
     Route: 048
     Dates: start: 2012
  6. LOSARTAN [Concomitant]
     Indication: HYPERTENSION
     Dosage: START DATE: 2 YEARS AGO
     Route: 048
     Dates: start: 2012
  7. CLIKSTAR [Concomitant]
     Indication: DEVICE THERAPY
     Dates: start: 2010

REACTIONS (2)
  - Cerebrovascular accident [Recovering/Resolving]
  - Hypotonia [Recovering/Resolving]
